FAERS Safety Report 8022178-3 (Version None)
Quarter: 2012Q1

REPORT INFORMATION
  Report Type: 
  Country: None (occurrence: None)
  Receive Date: 20120104
  Receipt Date: 20111229
  Transmission Date: 20120608
  Serious: Yes (Other)
  Sender: FDA-Public Use
  Company Number: GB-PFIZER INC-2011303912

PATIENT
  Age: 41 Year
  Sex: Female

DRUGS (3)
  1. LEVOTHYROXINE SODIUM [Concomitant]
  2. VARENICLINE TARTRATE [Suspect]
     Dosage: 1 MG, UNK
     Route: 048
     Dates: start: 20111101, end: 20111128
  3. VARENICLINE TARTRATE [Suspect]
     Dosage: 0.5 MG, UNK
     Route: 048
     Dates: start: 20111114, end: 20111101

REACTIONS (9)
  - ANGER [None]
  - DEPRESSED MOOD [None]
  - CRYING [None]
  - FEELING ABNORMAL [None]
  - ANXIETY [None]
  - AGGRESSION [None]
  - HYPERSOMNIA [None]
  - ABNORMAL DREAMS [None]
  - HUNGER [None]
